FAERS Safety Report 8860569 (Version 1)
Quarter: 2012Q4

REPORT INFORMATION
  Report Type: 
  Country: FR (occurrence: FR)
  Receive Date: 20121025
  Receipt Date: 20121025
  Transmission Date: 20130627
  Serious: Yes (Other)
  Sender: FDA-Public Use
  Company Number: FR-COVIDIEN/TYCO HEALTHCARE/MALLINCKRODT-T201203337

PATIENT
  Age: 55 Year
  Sex: Female

DRUGS (3)
  1. OPTIJECT [Suspect]
     Dosage: 100 ml, single
  2. ANTIHISTAMINES [Concomitant]
     Indication: PREMEDICATION
     Dosage: 3 days pretreatment
  3. GLUCOCORTICOIDS [Concomitant]
     Indication: PREMEDICATION
     Dosage: 3 days pretreatment

REACTIONS (3)
  - Angioedema [Recovered/Resolved]
  - Urticaria [Recovered/Resolved]
  - Dyspnoea [Recovered/Resolved]
